FAERS Safety Report 6911141-9 (Version None)
Quarter: 2010Q3

REPORT INFORMATION
  Report Type: 
  Country: None (occurrence: None)
  Receive Date: 20100806
  Receipt Date: 20100727
  Transmission Date: 20110219
  Serious: Yes (Life-Threatening, Disabling)
  Sender: FDA-Public Use
  Company Number: US-MERCK-1007USA03979

PATIENT
  Age: 92 Year
  Sex: Female

DRUGS (8)
  1. ZETIA [Suspect]
     Indication: BLOOD CHOLESTEROL
     Route: 048
     Dates: start: 20090101
  2. LIPITOR [Concomitant]
     Route: 065
  3. AMITRIPTYLINE HYDROCHLORIDE [Concomitant]
     Route: 065
  4. TOPROL-XL [Concomitant]
     Route: 065
  5. DIGOXIN [Concomitant]
     Route: 065
  6. HYDROCHLOROTHIAZIDE [Concomitant]
     Route: 065
  7. CELEBREX [Concomitant]
     Route: 065
  8. NIFEDIPINE [Concomitant]
     Route: 065

REACTIONS (6)
  - APHASIA [None]
  - CHOKING SENSATION [None]
  - DYSPHONIA [None]
  - FOREIGN BODY [None]
  - HYPOAESTHESIA ORAL [None]
  - TABLET ISSUE [None]
